FAERS Safety Report 8110705 (Version 6)
Quarter: 2014Q3

REPORT INFORMATION
  Report Type: Report from Study
  Country: US (occurrence: US)
  Receive Date: 20110829
  Receipt Date: 20140718
  Transmission Date: 20150326
  Serious: Yes (Death, Hospitalization)
  Sender: FDA-Public Use
  Company Number: JP-BRISTOL-MYERS SQUIBB COMPANY-15993389

PATIENT
  Age: 64 Year
  Sex: Male
  Weight: 104.5 kg

DRUGS (9)
  1. GLUCOPHAGE [Concomitant]
     Active Substance: METFORMIN HYDROCHLORIDE
  2. NORVASC [Concomitant]
     Active Substance: AMLODIPINE BESYLATE
  3. BABY ASPIRIN [Concomitant]
     Active Substance: ASPIRIN
  4. REMERON [Concomitant]
     Active Substance: MIRTAZAPINE
  5. HYDROCHLOROTHIAZIDE. [Concomitant]
     Active Substance: HYDROCHLOROTHIAZIDE
  6. ZOMETA [Concomitant]
     Active Substance: ZOLEDRONIC ACID
  7. COREG [Concomitant]
     Active Substance: CARVEDILOL
  8. ZOCOR [Concomitant]
     Active Substance: SIMVASTATIN
  9. YERVOY [Suspect]
     Active Substance: IPILIMUMAB
     Indication: MALIGNANT MELANOMA
     Dosage: COURSES:1,REMOVED FROM PROTOCOL 17AUG11?CYC:21DY,10MG/KG-90MIN ON DY 1?10MG/KG-Q3W 4CYC;MAINT:Q12W
     Route: 042
     Dates: start: 20110727, end: 20110727

REACTIONS (9)
  - Hepatic failure [Fatal]
  - Muscular weakness [Not Recovered/Not Resolved]
  - Blood alkaline phosphatase increased [Not Recovered/Not Resolved]
  - Alanine aminotransferase increased [Not Recovered/Not Resolved]
  - Multi-organ failure [Fatal]
  - Dehydration [Not Recovered/Not Resolved]
  - Fatigue [Not Recovered/Not Resolved]
  - Aspartate aminotransferase increased [Recovering/Resolving]
  - Decreased appetite [Not Recovered/Not Resolved]

NARRATIVE: CASE EVENT DATE: 20110815
